FAERS Safety Report 9420982 (Version 1)
Quarter: 2013Q3

REPORT INFORMATION
  Report Type: Other
  Country: US (occurrence: US)
  Receive Date: 20130725
  Receipt Date: 20130725
  Transmission Date: 20140515
  Serious: Yes (Other)
  Sender: FDA-Public Use
  Company Number: US-BRISTOL-MYERS SQUIBB COMPANY-19108521

PATIENT
  Age: 70 Year
  Sex: Male

DRUGS (2)
  1. LEVODOPA + CARBIDOPA [Suspect]
     Indication: PARKINSON^S DISEASE
     Dosage: 1DF:650/175MG AND REDUCED TO 600/150MG.
  2. PRAMIPEXOLE HCL [Suspect]
     Indication: PARKINSON^S DISEASE
     Dosage: INCREASE TO 3.75 AND REDUCED TO 3MG/DAY

REACTIONS (2)
  - Impulse-control disorder [Recovered/Resolved]
  - Drug abuse [Recovered/Resolved]
